FAERS Safety Report 7081076-2 (Version None)
Quarter: 2010Q4

REPORT INFORMATION
  Report Type: 
  Country: None (occurrence: None)
  Receive Date: 20101103
  Receipt Date: 20101026
  Transmission Date: 20110411
  Serious: Yes (Hospitalization)
  Sender: FDA-Public Use
  Company Number: AU-ROCHE-735464

PATIENT
  Age: 46 Year
  Sex: Male

DRUGS (9)
  1. MYCOPHENOLATE MOFETIL [Suspect]
     Route: 048
     Dates: start: 20090514, end: 20091001
  2. PREDNISONE [Suspect]
     Route: 048
     Dates: start: 20091015, end: 20101001
  3. ZANTAC [Concomitant]
     Route: 048
     Dates: start: 20080501, end: 20101006
  4. BETALOC [Concomitant]
     Indication: HYPERTENSION
     Route: 048
     Dates: start: 20080531
  5. AMLODIPINE [Concomitant]
     Indication: HYPERTENSION
     Route: 048
     Dates: start: 20080601
  6. ROCALTROL [Concomitant]
     Indication: PROPHYLAXIS
     Route: 048
     Dates: start: 20080514
  7. ATACAND [Concomitant]
     Indication: HYPERTENSION
     Route: 048
     Dates: start: 20090729
  8. LIPITOR [Concomitant]
     Indication: HYPERLIPIDAEMIA
     Route: 048
     Dates: start: 20080919, end: 20101001
  9. EZETROL [Concomitant]
     Indication: HYPERLIPIDAEMIA
     Route: 048
     Dates: start: 20091116, end: 20101001

REACTIONS (1)
  - EPSTEIN-BARR VIRUS ASSOCIATED LYMPHOPROLIFERATIVE DISORDER [None]
